FAERS Safety Report 12522404 (Version 1)
Quarter: 2016Q3

REPORT INFORMATION
  Report Type: Spontaneous
  Country: AE (occurrence: AE)
  Receive Date: 20160701
  Receipt Date: 20160701
  Transmission Date: 20161109
  Serious: Yes (Hospitalization)
  Sender: FDA-Public Use
  Company Number: AE-MYLANLABS-2016M1027134

PATIENT

DRUGS (2)
  1. LITHIUM. [Suspect]
     Active Substance: LITHIUM
     Dosage: 2000 MG/DAY
     Route: 048
     Dates: start: 2007
  2. LITHIUM. [Suspect]
     Active Substance: LITHIUM
     Indication: BIPOLAR DISORDER
     Dosage: PRESCRIBED DOSE: 1200 MG/DAY; TAKEN TWO EXTRA TABLETS OF LITHIUM OVER AND ABOVE THE PRESCRIBED DOSE.
     Route: 048
     Dates: start: 2007

REACTIONS (3)
  - Intentional overdose [Not Recovered/Not Resolved]
  - Toxicity to various agents [Not Recovered/Not Resolved]
  - Cerebellar syndrome [Not Recovered/Not Resolved]
